FAERS Safety Report 4876069-7 (Version None)
Quarter: 2006Q1

REPORT INFORMATION
  Report Type: 
  Country: None (occurrence: None)
  Receive Date: 20060106
  Receipt Date: 20060106
  Transmission Date: 20060701
  Serious: Yes (Other)
  Sender: FDA-Public Use
  Company Number: None

PATIENT
  Sex: Female
  Weight: 89.4 kg

DRUGS (3)
  1. CISPLATIN [Suspect]
     Indication: ADENOCARCINOMA OF THE CERVIX
     Dosage: SEE IMAGE
     Route: 042
     Dates: start: 20051118, end: 20051118
  2. NAVELBINE BITATRATE [Suspect]
     Dosage: SEE IMAGE
     Route: 042
     Dates: start: 20051118, end: 20051125
  3. VICODIN [Concomitant]

REACTIONS (2)
  - ANAEMIA [None]
  - NEUTROPHIL COUNT DECREASED [None]
